APPROVED DRUG PRODUCT: GLYNASE
Active Ingredient: GLYBURIDE
Strength: 6MG
Dosage Form/Route: TABLET;ORAL
Application: N020051 | Product #004
Applicant: PFIZER INC
Approved: Sep 24, 1993 | RLD: Yes | RS: No | Type: DISCN